FAERS Safety Report 20751070 (Version 9)
Quarter: 2022Q3

REPORT INFORMATION
  Report Type: Other
  Country: GB (occurrence: None)
  Receive Date: 20220426
  Receipt Date: 20220920
  Transmission Date: 20221027
  Serious: Yes (Hospitalization, Other)
  Sender: FDA-Public Use
  Company Number: GB-ROCHE-3081254

PATIENT
  Age: 68 Year
  Sex: Male
  Weight: 84.2 kg

DRUGS (19)
  1. ATEZOLIZUMAB [Suspect]
     Active Substance: ATEZOLIZUMAB
     Indication: Hepatocellular carcinoma
     Route: 042
     Dates: start: 20220302
  2. BEVACIZUMAB [Suspect]
     Active Substance: BEVACIZUMAB
     Indication: Hepatocellular carcinoma
     Route: 065
     Dates: start: 20220302
  3. PREGABALIN [Concomitant]
     Active Substance: PREGABALIN
     Dates: start: 20220701, end: 20220819
  4. PREGABALIN [Concomitant]
     Active Substance: PREGABALIN
     Dates: start: 20220819
  5. SIMVASTATIN [Concomitant]
     Active Substance: SIMVASTATIN
  6. PROPRANOLOL HYDROCHLORIDE [Concomitant]
     Active Substance: PROPRANOLOL HYDROCHLORIDE
  7. COCODAMOL [Concomitant]
     Active Substance: ACETAMINOPHEN\CODEINE PHOSPHATE
  8. ACETAMINOPHEN [Concomitant]
     Active Substance: ACETAMINOPHEN
  9. FINASTERIDE [Concomitant]
     Active Substance: FINASTERIDE
  10. HYDROCORTISONE [Concomitant]
     Active Substance: HYDROCORTISONE
     Dates: start: 20220615
  11. CARVEDILOL [Concomitant]
     Active Substance: CARVEDILOL
     Dates: start: 20220615
  12. TERLIPRESSIN [Concomitant]
     Active Substance: TERLIPRESSIN
     Dates: end: 20220627
  13. THROMBIN [Concomitant]
     Active Substance: THROMBIN
     Dates: start: 20220626, end: 20220626
  14. GLICLAZIDE [Concomitant]
     Active Substance: GLICLAZIDE
     Dates: start: 20220703
  15. LACTULOSE [Concomitant]
     Active Substance: LACTULOSE
     Dosage: 15 ML
     Dates: start: 20220703
  16. LANSOPRAZOLE [Concomitant]
     Active Substance: LANSOPRAZOLE
     Dosage: 30MG
     Dates: start: 20220708
  17. SPIRONOLACTONE [Concomitant]
     Active Substance: SPIRONOLACTONE
     Indication: Product used for unknown indication
     Dates: start: 20220611
  18. ALBUTEROL [Concomitant]
     Active Substance: ALBUTEROL
     Indication: Product used for unknown indication
     Dates: start: 20220711
  19. POLYETHYLENE GLYCOLS [Concomitant]
     Active Substance: POLYETHYLENE GLYCOLS
     Indication: Constipation
     Dates: start: 20220825

REACTIONS (18)
  - Insomnia [Not Recovered/Not Resolved]
  - Sciatica [Not Recovered/Not Resolved]
  - Urinary retention [Recovered/Resolved]
  - Fatigue [Not Recovered/Not Resolved]
  - Diarrhoea [Recovered/Resolved]
  - Decreased appetite [Recovered/Resolved]
  - Cortisol decreased [Recovered/Resolved]
  - Hyponatraemia [Recovered/Resolved]
  - Haematemesis [Recovered/Resolved]
  - Varices oesophageal [Not Recovered/Not Resolved]
  - Blood calcium decreased [Recovered/Resolved]
  - Rectal haemorrhage [Recovered/Resolved]
  - Haemorrhoids [Not Recovered/Not Resolved]
  - Blood magnesium decreased [Recovered/Resolved]
  - Gastric varices [Not Recovered/Not Resolved]
  - Melaena [Recovered/Resolved]
  - Contusion [Recovered/Resolved]
  - Muscle spasms [Not Recovered/Not Resolved]

NARRATIVE: CASE EVENT DATE: 20220305
